FAERS Safety Report 18822279 (Version 2)
Quarter: 2021Q1

REPORT INFORMATION
  Report Type: Spontaneous
  Country: US (occurrence: US)
  Receive Date: 20210202
  Receipt Date: 20210226
  Transmission Date: 20210419
  Serious: Yes (Death, Hospitalization)
  Sender: FDA-Public Use
  Company Number: US-UNITED THERAPEUTICS-UNT-2021-001828

PATIENT
  Sex: Female

DRUGS (2)
  1. REMODULIN [Suspect]
     Active Substance: TREPROSTINIL
     Indication: PULMONARY ARTERIAL HYPERTENSION
     Dosage: UNK, CONTINUING
     Route: 058
     Dates: start: 20150512
  2. REMODULIN [Suspect]
     Active Substance: TREPROSTINIL
     Dosage: 0.0798 ?G/KG, CONTINUING
     Route: 058
     Dates: start: 20160512, end: 20210219

REACTIONS (2)
  - Malaise [Unknown]
  - Transplant failure [Fatal]
